FAERS Safety Report 15940336 (Version 3)
Quarter: 2019Q2

REPORT INFORMATION
  Report Type: Spontaneous
  Country: US (occurrence: US)
  Receive Date: 20190208
  Receipt Date: 20190501
  Transmission Date: 20190711
  Serious: Yes (Other)
  Sender: FDA-Public Use
  Company Number: US-ASTRAZENECA-2018SF22243

PATIENT
  Sex: Female

DRUGS (16)
  1. TRAMADOL. [Concomitant]
     Active Substance: TRAMADOL
  2. TORADOL [Concomitant]
     Active Substance: KETOROLAC TROMETHAMINE
  3. CEPHALEXIN. [Concomitant]
     Active Substance: CEPHALEXIN
  4. TUMS [Concomitant]
     Active Substance: CALCIUM CARBONATE
  5. DEXILANT [Suspect]
     Active Substance: DEXLANSOPRAZOLE
     Indication: GASTROOESOPHAGEAL REFLUX DISEASE
     Route: 065
     Dates: start: 2005, end: 2015
  6. AMOXICILLIN. [Concomitant]
     Active Substance: AMOXICILLIN
  7. TYLENOL [Concomitant]
     Active Substance: ACETAMINOPHEN
  8. ASPIRIN. [Concomitant]
     Active Substance: ASPIRIN
  9. PRILOSEC [Suspect]
     Active Substance: OMEPRAZOLE MAGNESIUM
     Indication: GASTROOESOPHAGEAL REFLUX DISEASE
     Route: 048
  10. PREVACID [Suspect]
     Active Substance: LANSOPRAZOLE
     Route: 065
  11. DEXILANT [Suspect]
     Active Substance: DEXLANSOPRAZOLE
     Indication: GASTROOESOPHAGEAL REFLUX DISEASE
     Route: 065
     Dates: start: 20130228, end: 20150427
  12. ROLAIDS [Concomitant]
     Active Substance: CALCIUM CARBONATE\MAGNESIUM HYDROXIDE
  13. NAPROXEN. [Concomitant]
     Active Substance: NAPROXEN
  14. ERYTHROMYCIN. [Concomitant]
     Active Substance: ERYTHROMYCIN
  15. PENICILLIN [Concomitant]
     Active Substance: PENICILLIN
  16. BACTRIM [Concomitant]
     Active Substance: SULFAMETHOXAZOLE\TRIMETHOPRIM

REACTIONS (3)
  - Tubulointerstitial nephritis [Not Recovered/Not Resolved]
  - Renal injury [Unknown]
  - Chronic kidney disease [Unknown]
